FAERS Safety Report 17454458 (Version 1)
Quarter: 2020Q1

REPORT INFORMATION
  Report Type: Spontaneous
  Country: US (occurrence: US)
  Receive Date: 20200225
  Receipt Date: 20200225
  Transmission Date: 20200409
  Serious: No
  Sender: FDA-Public Use
  Company Number: US-CIPLA LTD.-2020US00717

PATIENT

DRUGS (5)
  1. TYLENOL [Concomitant]
     Active Substance: ACETAMINOPHEN
     Indication: PAIN
     Dosage: UNK
     Route: 065
  2. GABAPENTIN. [Concomitant]
     Active Substance: GABAPENTIN
     Indication: ARTHRALGIA
     Dosage: 300 MG, 3 TO 4 TIMES A DAY (AUROBINDO PHARMACEUTICALS)
     Route: 065
     Dates: start: 2018
  3. DICLOFENAC [Suspect]
     Active Substance: DICLOFENAC
     Indication: ARTHRALGIA
     Dosage: UNK, 1 %
     Route: 061
     Dates: start: 2018
  4. DICLOFENAC [Suspect]
     Active Substance: DICLOFENAC
     Dosage: UNK, 1 %
     Route: 061
  5. DICLOFENAC [Suspect]
     Active Substance: DICLOFENAC
     Indication: ARTHRALGIA
     Dosage: UNK, 1 %
     Route: 061

REACTIONS (6)
  - Off label use [Not Recovered/Not Resolved]
  - Product odour abnormal [Unknown]
  - Product use issue [Unknown]
  - Product quality issue [Unknown]
  - Drug ineffective [Unknown]
  - Drug ineffective for unapproved indication [Not Recovered/Not Resolved]

NARRATIVE: CASE EVENT DATE: 2018
